FAERS Safety Report 25746352 (Version 1)
Quarter: 2025Q3

REPORT INFORMATION
  Report Type: Spontaneous
  Country: IN (occurrence: IN)
  Receive Date: 20250901
  Receipt Date: 20250901
  Transmission Date: 20251021
  Serious: Yes (Other)
  Sender: HETERO
  Company Number: IN-AMAROX PHARMA-HET2025IN05068

PATIENT
  Age: 48 Year
  Sex: Male

DRUGS (2)
  1. PREGABALIN [Suspect]
     Active Substance: PREGABALIN
     Indication: Seizure
     Route: 065
  2. PREGABALIN [Suspect]
     Active Substance: PREGABALIN
     Route: 065

REACTIONS (9)
  - Intentional overdose [Unknown]
  - Drug dependence [Unknown]
  - Irritability [Recovering/Resolving]
  - Asthenia [Unknown]
  - Hypoaesthesia [Unknown]
  - Gastrointestinal disorder [Recovering/Resolving]
  - Dyspnoea [Recovering/Resolving]
  - Headache [Recovering/Resolving]
  - Confusional state [Recovering/Resolving]
